FAERS Safety Report 8604307-3 (Version None)
Quarter: 2012Q3

REPORT INFORMATION
  Report Type: 
  Country: None (occurrence: None)
  Receive Date: 20120820
  Receipt Date: 20120808
  Transmission Date: 20120928
  Serious: Yes (Other)
  Sender: FDA-Public Use
  Company Number: BR-JNJFOC-20120806163

PATIENT
  Age: 46 Year
  Sex: Female

DRUGS (2)
  1. REMICADE [Suspect]
     Indication: RHEUMATOID ARTHRITIS
     Route: 042
     Dates: start: 20120731, end: 20120731
  2. BENADRYL [Concomitant]
     Indication: PREMEDICATION
     Dosage: HALF AMPOULE
     Route: 065

REACTIONS (5)
  - INFUSION RELATED REACTION [None]
  - NAUSEA [None]
  - PARAESTHESIA [None]
  - BACK PAIN [None]
  - HEADACHE [None]
